FAERS Safety Report 6808146-5 (Version None)
Quarter: 2010Q2

REPORT INFORMATION
  Report Type: 
  Country: None (occurrence: None)
  Receive Date: 20100629
  Receipt Date: 20090331
  Transmission Date: 20101027
  Serious: No
  Sender: FDA-Public Use
  Company Number: US-PFIZER INC-2009191138

PATIENT
  Age: 55 Year
  Sex: Female
  Weight: 55.3 kg

DRUGS (7)
  1. XANAX [Suspect]
     Dosage: UNK
  2. LYRICA [Suspect]
     Dosage: UNK
  3. TRAZODONE HCL [Suspect]
     Dosage: UNK
  4. LISINOPRIL [Suspect]
     Dosage: UNK
  5. NICOTINE [Suspect]
     Indication: SMOKING CESSATION THERAPY
     Dosage: 21 MG, 1X/DAY
     Route: 062
     Dates: start: 20090219
  6. METOPROLOL [Concomitant]
     Dosage: UNK
  7. OXYCODONE HCL AND ACETAMINOPHEN [Concomitant]
     Dosage: UNK

REACTIONS (2)
  - HEADACHE [None]
  - TREATMENT NONCOMPLIANCE [None]
